FAERS Safety Report 5210244-7 (Version None)
Quarter: 2007Q1

REPORT INFORMATION
  Report Type: 
  Country: None (occurrence: None)
  Receive Date: 20070112
  Receipt Date: 20070112
  Transmission Date: 20070707
  Serious: Yes (Other)
  Sender: FDA-Public Use
  Company Number: None

PATIENT
  Sex: Male

DRUGS (1)
  1. TRASYLOL [Suspect]
     Indication: OPERATIVE HAEMORRHAGE
     Dates: start: 20060906, end: 20060906

REACTIONS (1)
  - RENAL FAILURE ACUTE [None]
